FAERS Safety Report 21406713 (Version 1)
Quarter: 2022Q4

REPORT INFORMATION
  Report Type: Spontaneous
  Country: US (occurrence: US)
  Receive Date: 20221004
  Receipt Date: 20221004
  Transmission Date: 20230113
  Serious: No
  Sender: FDA-Public Use
  Company Number: US-BION-010756

PATIENT
  Sex: Female

DRUGS (1)
  1. ANTI-DIARRHEAL LOPERAMIDE HCL [Suspect]
     Active Substance: LOPERAMIDE HYDROCHLORIDE
     Indication: Product used for unknown indication
     Dosage: STRENGTH: 2MG, 24 COUNT

REACTIONS (2)
  - Erythema [Unknown]
  - Incorrect product administration duration [Not Recovered/Not Resolved]

NARRATIVE: CASE EVENT DATE: 20220405
